FAERS Safety Report 9882771 (Version 2)
Quarter: 2014Q2

REPORT INFORMATION
  Report Type: Spontaneous
  Country: US (occurrence: US)
  Receive Date: 20140207
  Receipt Date: 20140622
  Transmission Date: 20141212
  Serious: Yes (Death, Hospitalization)
  Sender: FDA-Public Use
  Company Number: PHHY2014US012114

PATIENT
  Age: 41 Year
  Sex: Female

DRUGS (2)
  1. PROPOFOL [Suspect]
     Indication: AGITATION
  2. SUCCINYLCHOLINE CHLORIDE [Suspect]

REACTIONS (6)
  - Death [Fatal]
  - Multi-organ failure [Unknown]
  - Bruxism [Unknown]
  - Respiratory failure [Unknown]
  - Hyperthermia malignant [Unknown]
  - Body temperature increased [Unknown]
